FAERS Safety Report 6835622-1 (Version None)
Quarter: 2010Q3

REPORT INFORMATION
  Report Type: 
  Country: None (occurrence: None)
  Receive Date: 20100713
  Receipt Date: 20100702
  Transmission Date: 20110219
  Serious: Yes (Hospitalization)
  Sender: FDA-Public Use
  Company Number: FR-JNJFOC-20100701374

PATIENT
  Age: 33 Year
  Sex: Female

DRUGS (5)
  1. REMICADE [Suspect]
     Indication: CROHN'S DISEASE
     Route: 042
  2. REMICADE [Suspect]
     Indication: PSORIASIS
     Route: 042
  3. ADALIMUMAB [Suspect]
     Indication: CROHN'S DISEASE
  4. ADALIMUMAB [Suspect]
  5. ADALIMUMAB [Suspect]

REACTIONS (7)
  - ABDOMINAL INJURY [None]
  - ACUTE RESPIRATORY DISTRESS SYNDROME [None]
  - CANDIDIASIS [None]
  - LARGE INTESTINE PERFORATION [None]
  - PERITONITIS [None]
  - SPLENIC RUPTURE [None]
  - SPORTS INJURY [None]
